FAERS Safety Report 16766878 (Version 1)
Quarter: 2019Q3

REPORT INFORMATION
  Report Type: Spontaneous
  Country: US (occurrence: US)
  Receive Date: 20190903
  Receipt Date: 20190903
  Transmission Date: 20191005
  Serious: No
  Sender: FDA-Public Use
  Company Number: US-PFIZER INC-2019372182

PATIENT
  Age: 63 Year
  Sex: Female

DRUGS (1)
  1. RELPAX [Suspect]
     Active Substance: ELETRIPTAN HYDROBROMIDE
     Indication: MIGRAINE
     Dosage: 40 MG, 1X/DAY (AS NEEDED)
     Route: 048

REACTIONS (3)
  - Recalled product administered [Unknown]
  - Abdominal pain upper [Unknown]
  - Frequent bowel movements [Not Recovered/Not Resolved]
